FAERS Safety Report 15396118 (Version 1)
Quarter: 2018Q3

REPORT INFORMATION
  Report Type: Spontaneous
  Country: US (occurrence: US)
  Receive Date: 20180911
  Receipt Date: 20180911
  Transmission Date: 20181010
  Serious: Yes (Hospitalization)
  Sender: FDA-Public Use
  Company Number: None

PATIENT
  Age: 38 Year
  Sex: Male

DRUGS (4)
  1. NUCALA [Suspect]
     Active Substance: MEPOLIZUMAB
     Indication: LUNG DISORDER
     Route: 058
     Dates: start: 20180327
  2. FLUTICASONE. [Concomitant]
     Active Substance: FLUTICASONE
  3. VENTOLIN [Concomitant]
     Active Substance: ALBUTEROL SULFATE
  4. NUCALA [Suspect]
     Active Substance: MEPOLIZUMAB
     Indication: POLYARTHRITIS
     Route: 058
     Dates: start: 20180327

REACTIONS (5)
  - Drug ineffective [None]
  - Gastroenteritis [None]
  - Clostridium difficile colitis [None]
  - Gastroenteritis norovirus [None]
  - Nephrolithiasis [None]

NARRATIVE: CASE EVENT DATE: 20180901
